FAERS Safety Report 20473632 (Version 1)
Quarter: 2022Q1

REPORT INFORMATION
  Report Type: Spontaneous
  Country: US (occurrence: US)
  Receive Date: 20220215
  Receipt Date: 20220215
  Transmission Date: 20220423
  Serious: No
  Sender: FDA-Public Use
  Company Number: US-BAYER-2022A023013

PATIENT
  Sex: Female

DRUGS (1)
  1. MIRALAX [Suspect]
     Active Substance: POLYETHYLENE GLYCOL 3350
     Indication: Product used for unknown indication
     Dosage: 1-2 DOSES DAILY
     Route: 048

REACTIONS (3)
  - Nausea [Recovering/Resolving]
  - Incorrect product administration duration [Recovering/Resolving]
  - Incorrect dose administered [None]
